FAERS Safety Report 6276003-1 (Version None)
Quarter: 2009Q3

REPORT INFORMATION
  Report Type: 
  Country: None (occurrence: None)
  Receive Date: 20090720
  Receipt Date: 20090707
  Transmission Date: 20100115
  Serious: Yes (Hospitalization)
  Sender: FDA-Public Use
  Company Number: A-NJ2009-26111

PATIENT
  Age: 58 Year
  Sex: Female

DRUGS (6)
  1. TRACLEER [Suspect]
     Indication: PULMONARY ARTERIAL HYPERTENSION
     Dosage: 125 MG, BID, ORAL
     Route: 048
     Dates: start: 20050622
  2. REMODULIN (TREPROSTINIL) [Concomitant]
  3. SILDENAFIL CITRATE [Concomitant]
  4. WARFARIN SODIUM [Concomitant]
  5. DIURETICS [Concomitant]
  6. DIGOXIN [Concomitant]

REACTIONS (2)
  - CENTRAL LINE INFECTION [None]
  - KLEBSIELLA BACTERAEMIA [None]
